FAERS Safety Report 8259238-8 (Version None)
Quarter: 2012Q2

REPORT INFORMATION
  Report Type: 
  Country: None (occurrence: None)
  Receive Date: 20120404
  Receipt Date: 20120329
  Transmission Date: 20120825
  Serious: No
  Sender: FDA-Public Use
  Company Number: US-PFIZER INC-2012081623

PATIENT

DRUGS (1)
  1. CELEBREX [Suspect]
     Dosage: UNK

REACTIONS (5)
  - ANXIETY [None]
  - HYSTERECTOMY [None]
  - BONE DENSITY DECREASED [None]
  - DEPRESSION [None]
  - MINERAL DEFICIENCY [None]
